FAERS Safety Report 19363481 (Version 2)
Quarter: 2021Q2

REPORT INFORMATION
  Report Type: Spontaneous
  Country: NL (occurrence: NL)
  Receive Date: 20210602
  Receipt Date: 20210617
  Transmission Date: 20210717
  Serious: Yes (Life-Threatening, Disabling, Other)
  Sender: FDA-Public Use
  Company Number: NL-PFIZER INC-2021572732

PATIENT
  Age: 60 Year
  Sex: Female
  Weight: 110 kg

DRUGS (2)
  1. PALBOCICLIB [Suspect]
     Active Substance: PALBOCICLIB
     Indication: BREAST CANCER METASTATIC
     Dosage: 100 MG, 1X/DAY
     Dates: start: 20210126, end: 20210420
  2. FULVESTRANT. [Concomitant]
     Active Substance: FULVESTRANT
     Dosage: SOLUTION FOR INJECTION, 50MG/ML

REACTIONS (2)
  - Hepatic encephalopathy [Not Recovered/Not Resolved]
  - Acute hepatic failure [Not Recovered/Not Resolved]

NARRATIVE: CASE EVENT DATE: 20210501
